FAERS Safety Report 5130467-5 (Version None)
Quarter: 2006Q4

REPORT INFORMATION
  Report Type: 
  Country: None (occurrence: None)
  Receive Date: 20061019
  Receipt Date: 20060907
  Transmission Date: 20070319
  Serious: Yes (Disabling)
  Sender: FDA-Public Use
  Company Number: PHHO2006CL14997

PATIENT
  Age: 47 Year
  Sex: Female

DRUGS (7)
  1. ATEMPERATOR [Concomitant]
     Indication: EPILEPSY
  2. RAVOTRIL [Concomitant]
  3. NORDOX [Concomitant]
  4. MELPAX [Concomitant]
     Indication: PAIN
  5. QUETIAPINE [Concomitant]
     Indication: SLEEP DISORDER
  6. ZELMAC / HTF 919A [Suspect]
     Indication: IRRITABLE BOWEL SYNDROME
     Dosage: UNK, BID
     Route: 048
     Dates: start: 20050101
  7. LEXAPRO [Concomitant]
     Indication: DEPRESSION

REACTIONS (2)
  - CATHETER PLACEMENT [None]
  - TRIGONITIS [None]
